FAERS Safety Report 13928576 (Version 2)
Quarter: 2019Q4

REPORT INFORMATION
  Report Type: Spontaneous
  Country: US (occurrence: US)
  Receive Date: 20170901
  Receipt Date: 20191220
  Transmission Date: 20200122
  Serious: Yes (Life-Threatening)
  Sender: FDA-Public Use
  Company Number: US-IPSEN BIOPHARMACEUTICALS, INC.-2010-4206

PATIENT
  Age: 2 Year
  Sex: Female
  Weight: 10 kg

DRUGS (14)
  1. INCRELEX [Suspect]
     Active Substance: MECASERMIN
     Indication: AUTOSOMAL CHROMOSOME ANOMALY
     Route: 058
     Dates: start: 20090427, end: 2010
  2. RIOMET [Concomitant]
     Active Substance: METFORMIN HYDROCHLORIDE
  3. INSULIN [Concomitant]
     Active Substance: INSULIN NOS
     Route: 058
  4. LACTULOSE. [Concomitant]
     Active Substance: LACTULOSE
  5. BACTRIM [Concomitant]
     Active Substance: SULFAMETHOXAZOLE\TRIMETHOPRIM
  6. MVI [Concomitant]
     Active Substance: VITAMINS
  7. INSULIN [Concomitant]
     Active Substance: INSULIN NOS
     Indication: BLOOD KETONE BODY
     Route: 058
  8. MIRALAX [Concomitant]
     Active Substance: POLYETHYLENE GLYCOL 3350
  9. INCRELEX [Suspect]
     Active Substance: MECASERMIN
     Dosage: 640 UG/KG/DAY
     Route: 058
     Dates: start: 2010, end: 2010
  10. UREA. [Concomitant]
     Active Substance: UREA
  11. INCRELEX [Suspect]
     Active Substance: MECASERMIN
     Indication: OFF LABEL USE
     Route: 058
     Dates: start: 2010, end: 2010
  12. INCRELEX [Suspect]
     Active Substance: MECASERMIN
     Dosage: 800 UG/KG/DAY
     Route: 058
     Dates: start: 2010, end: 2010
  13. INCRELEX [Suspect]
     Active Substance: MECASERMIN
     Dosage: 1200 UG/KG/DAY
     Route: 058
     Dates: start: 2010, end: 20100916
  14. PREVACID [Concomitant]
     Active Substance: LANSOPRAZOLE

REACTIONS (2)
  - Off label use [Unknown]
  - Ovarian granulosa-theca cell tumour [Not Recovered/Not Resolved]

NARRATIVE: CASE EVENT DATE: 20100822
